FAERS Safety Report 25445464 (Version 3)
Quarter: 2025Q3

REPORT INFORMATION
  Report Type: Spontaneous
  Country: EU (occurrence: EU)
  Receive Date: 20250617
  Receipt Date: 20250928
  Transmission Date: 20251021
  Serious: Yes (Disabling, Other)
  Sender: IPSEN BIOPHARMACEUTICALS, INC.
  Company Number: EU-IPSEN Group, Research and Development-2025-13903

PATIENT
  Age: 8 Year
  Sex: Male
  Weight: 52 kg

DRUGS (1)
  1. PALOVAROTENE [Suspect]
     Active Substance: PALOVAROTENE
     Indication: Fibrodysplasia ossificans progressiva
     Route: 048
     Dates: start: 20180627, end: 20191009

REACTIONS (1)
  - Epiphyses premature fusion [Not Recovered/Not Resolved]

NARRATIVE: CASE EVENT DATE: 20190701
